FAERS Safety Report 4715523-5 (Version None)
Quarter: 2005Q3

REPORT INFORMATION
  Report Type: 
  Country: None (occurrence: None)
  Receive Date: 20050718
  Receipt Date: 20050706
  Transmission Date: 20060218
  Serious: Yes (Hospitalization)
  Sender: FDA-Public Use
  Company Number: US-JNJFOC-20050607486

PATIENT
  Sex: Female

DRUGS (19)
  1. REMICADE [Suspect]
     Indication: CROHN'S DISEASE
     Route: 042
  2. TOPAMAX [Concomitant]
  3. NEURONTIN [Concomitant]
  4. NEURONTIN [Concomitant]
     Dosage: 1200 MG - 600MG
  5. BENTYL [Concomitant]
     Dosage: BEFORE MEALS AND AT BEDTIME.
  6. TRAZADONE [Concomitant]
     Indication: INSOMNIA
  7. RABAKIN [Concomitant]
  8. ACCOLATE [Concomitant]
  9. CIPRO [Concomitant]
     Dosage: PRN
  10. ASTHMA INHALER [Concomitant]
     Indication: ASTHMA
  11. PROTONIX [Concomitant]
  12. PREDNISONE [Concomitant]
  13. MAALOX [Concomitant]
  14. MAALOX [Concomitant]
     Dosage: PRN
  15. MAXALT [Concomitant]
     Indication: MIGRAINE
  16. ZOFRAN [Concomitant]
     Dosage: EVERY 4-6 HOURS
  17. ULTRAM [Concomitant]
  18. TYLENOL [Concomitant]
     Indication: PREMEDICATION
  19. SOLU-MEDROL [Concomitant]
     Indication: PREMEDICATION

REACTIONS (9)
  - BACK PAIN [None]
  - BLOOD POTASSIUM DECREASED [None]
  - BLOOD PRESSURE DECREASED [None]
  - DYSKINESIA [None]
  - ERYTHEMA [None]
  - INFUSION RELATED REACTION [None]
  - OEDEMA PERIPHERAL [None]
  - PAIN IN EXTREMITY [None]
  - PARALYSIS [None]
